FAERS Safety Report 4599885-8 (Version None)
Quarter: 2005Q1

REPORT INFORMATION
  Report Type: 
  Country: None (occurrence: None)
  Receive Date: 20050303
  Receipt Date: 20050214
  Transmission Date: 20050727
  Serious: Yes (Hospitalization, Other)
  Sender: FDA-Public Use
  Company Number: DE_050215254

PATIENT
  Age: 62 Year
  Sex: Male

DRUGS (3)
  1. GEMZAR [Suspect]
     Indication: PANCREATIC CARCINOMA
     Dosage: 1000 MG/M2
     Dates: start: 20050101
  2. DEXAMETHASONE [Concomitant]
  3. KEVATRIL (GRANISETRON HYDROCHLORIDE) [Concomitant]

REACTIONS (11)
  - ALANINE AMINOTRANSFERASE INCREASED [None]
  - ASCITES [None]
  - ASPARTATE AMINOTRANSFERASE INCREASED [None]
  - BLOOD ALKALINE PHOSPHATASE INCREASED [None]
  - BLOOD BILIRUBIN INCREASED [None]
  - C-REACTIVE PROTEIN INCREASED [None]
  - GRANULOCYTE COUNT INCREASED [None]
  - NEOPLASM PROGRESSION [None]
  - PERITONITIS BACTERIAL [None]
  - SUBILEUS [None]
  - TUMOUR MARKER INCREASED [None]
